FAERS Safety Report 6344258-0 (Version None)
Quarter: 2009Q3

REPORT INFORMATION
  Report Type: 
  Country: None (occurrence: None)
  Receive Date: 20090904
  Receipt Date: 20090904
  Transmission Date: 20100115
  Serious: Yes (Life-Threatening, Hospitalization)
  Sender: FDA-Public Use
  Company Number: None

PATIENT
  Age: 43 Year
  Sex: Female
  Weight: 72.5755 kg

DRUGS (2)
  1. ESTRADIOL [Suspect]
     Indication: HOT FLUSH
     Dosage: 1 MG ONCE DAILY PO
     Route: 048
     Dates: start: 20090828, end: 20090831
  2. ESTRADIOL [Suspect]
     Indication: MENOPAUSAL SYMPTOMS
     Dosage: 1 MG ONCE DAILY PO
     Route: 048
     Dates: start: 20090828, end: 20090831

REACTIONS (5)
  - ANAEMIA [None]
  - DUODENAL ULCER [None]
  - GASTRIC ULCER [None]
  - GASTROINTESTINAL NECROSIS [None]
  - LEUKOCYTOSIS [None]
